FAERS Safety Report 23427429 (Version 1)
Quarter: 2024Q1

REPORT INFORMATION
  Report Type: Spontaneous
  Country: US (occurrence: US)
  Receive Date: 20240122
  Receipt Date: 20240122
  Transmission Date: 20240409
  Serious: Yes (Death, Life-Threatening, Hospitalization, Other)
  Sender: FDA-Public Use
  Company Number: US-SUN PHARMACEUTICAL INDUSTRIES LTD-2024R1-427897

PATIENT
  Age: 48 Year
  Sex: Female

DRUGS (1)
  1. GEMFIBROZIL [Suspect]
     Active Substance: GEMFIBROZIL
     Indication: Blood triglycerides increased
     Dosage: UNK
     Route: 065

REACTIONS (7)
  - Treatment failure [Fatal]
  - Abdominal compartment syndrome [Unknown]
  - Condition aggravated [Unknown]
  - Hypotension [Unknown]
  - Pancreatitis [Unknown]
  - Renal failure [Unknown]
  - Respiratory distress [Unknown]
